FAERS Safety Report 6089156-5 (Version None)
Quarter: 2009Q1

REPORT INFORMATION
  Report Type: 
  Country: None (occurrence: None)
  Receive Date: 20090219
  Receipt Date: 20090204
  Transmission Date: 20090719
  Serious: Yes (Other)
  Sender: FDA-Public Use
  Company Number: ENTC2008-0386

PATIENT
  Sex: Male

DRUGS (3)
  1. STALEVO 100 [Suspect]
     Indication: PARKINSON'S DISEASE
     Dosage: 200/100/25 MG 5 TIMES PER DAY
  2. NSAID'S [Suspect]
     Indication: CYSTITIS
  3. MODOPAR [Concomitant]

REACTIONS (5)
  - CYSTITIS [None]
  - PROSTATIC HAEMORRHAGE [None]
  - PYURIA [None]
  - RESPIRATORY DISORDER [None]
  - RESPIRATORY RATE INCREASED [None]
